FAERS Safety Report 9374641 (Version 4)
Quarter: 2014Q2

REPORT INFORMATION
  Report Type: Spontaneous
  Country: AR (occurrence: AR)
  Receive Date: 20130628
  Receipt Date: 20140527
  Transmission Date: 20141212
  Serious: Yes (Other)
  Sender: FDA-Public Use
  Company Number: AR-PFIZER INC-2013189706

PATIENT
  Age: 3 Year
  Sex: Male

DRUGS (2)
  1. GENOTROPIN [Suspect]
     Indication: GROWTH HORMONE DEFICIENCY
     Dosage: 0.1-0.3MG/SEVEN TIMES, WEEK
     Route: 058
     Dates: start: 20110705
  2. GENOTROPIN [Suspect]
     Dosage: 0.1-0.5MG/SEVEN TIMES, WEEK

REACTIONS (2)
  - Congenital aplastic anaemia [Not Recovered/Not Resolved]
  - Injection site haematoma [Not Recovered/Not Resolved]
